FAERS Safety Report 5234045-9 (Version None)
Quarter: 2007Q1

REPORT INFORMATION
  Report Type: 
  Country: None (occurrence: None)
  Receive Date: 20070208
  Receipt Date: 20070206
  Transmission Date: 20070707
  Serious: Yes (Death)
  Sender: FDA-Public Use
  Company Number: US-BOEHRINGER INGELHEIM PHARMACEUTICALS, INC.-2007-DE-00728GD

PATIENT
  Age: 76 Year
  Sex: Male

DRUGS (3)
  1. DIPYRIDAMOLE [Suspect]
     Indication: ANTICOAGULANT THERAPY
  2. ASPIRIN [Suspect]
     Indication: ANTICOAGULANT THERAPY
  3. WARFARIN SODIUM [Suspect]
     Indication: ANTICOAGULANT THERAPY

REACTIONS (1)
  - HAEMORRHAGE INTRACRANIAL [None]
